FAERS Safety Report 6716315-8 (Version None)
Quarter: 2010Q2

REPORT INFORMATION
  Report Type: 
  Country: None (occurrence: None)
  Receive Date: 20100507
  Receipt Date: 20100430
  Transmission Date: 20101027
  Serious: Yes (Hospitalization)
  Sender: FDA-Public Use
  Company Number: PHHO2010IT06598

PATIENT
  Sex: Male
  Weight: 63 kg

DRUGS (3)
  1. CERTICAN [Suspect]
     Indication: RENAL TRANSPLANT
     Dosage: 1.75MG/DAY
     Route: 048
     Dates: start: 20100123, end: 20100426
  2. NEORAL [Suspect]
     Indication: RENAL TRANSPLANT
     Dosage: 50 MG, BID
     Route: 048
     Dates: start: 20100123, end: 20100426
  3. DELTACORTENE [Suspect]

REACTIONS (1)
  - URINARY FISTULA [None]
